FAERS Safety Report 6916014-3 (Version None)
Quarter: 2010Q3

REPORT INFORMATION
  Report Type: 
  Country: None (occurrence: None)
  Receive Date: 20100810
  Receipt Date: 20100726
  Transmission Date: 20110219
  Serious: Yes (Hospitalization, Other)
  Sender: FDA-Public Use
  Company Number: JP-JNJFOC-20100705031

PATIENT
  Age: 34 Year
  Sex: Female
  Weight: 42 kg

DRUGS (3)
  1. INFLIXIMAB, RECOMBINANT [Suspect]
     Indication: CROHN'S DISEASE
     Dosage: AFTER 14 DAYS
     Route: 042
  2. INFLIXIMAB, RECOMBINANT [Suspect]
     Dosage: AFTER 28 DAYS
     Route: 042
  3. INFLIXIMAB, RECOMBINANT [Suspect]
     Dosage: RECEIVED 3 INFUSIONS
     Route: 042

REACTIONS (1)
  - RECTAL CANCER STAGE III [None]
